FAERS Safety Report 8186778-2 (Version None)
Quarter: 2012Q1

REPORT INFORMATION
  Report Type: 
  Country: None (occurrence: None)
  Receive Date: 20120306
  Receipt Date: 20120306
  Transmission Date: 20120608
  Serious: Yes (Death, Hospitalization)
  Sender: FDA-Public Use
  Company Number: None

PATIENT
  Age: 90 Year
  Sex: Female
  Weight: 52.163 kg

DRUGS (1)
  1. PRADAXA [Suspect]
     Indication: MITRAL VALVE REPLACEMENT
     Route: 048
     Dates: start: 20100101, end: 20120116

REACTIONS (6)
  - GASTROINTESTINAL INFECTION [None]
  - LARGE INTESTINE PERFORATION [None]
  - GASTRIC HAEMORRHAGE [None]
  - PROCEDURAL COMPLICATION [None]
  - HAEMATOCHEZIA [None]
  - URINARY TRACT INFECTION [None]
